FAERS Safety Report 24144337 (Version 1)
Quarter: 2024Q3

REPORT INFORMATION
  Report Type: Report from Study
  Country: ZA (occurrence: ZA)
  Receive Date: 20240728
  Receipt Date: 20240728
  Transmission Date: 20241016
  Serious: Yes (Other)
  Sender: SANDOZ
  Company Number: ZA-SANDOZ-SDZ2023ZA009376

PATIENT
  Sex: Male
  Weight: 92 kg

DRUGS (2)
  1. ERELZI [Suspect]
     Active Substance: ETANERCEPT-SZZS
     Indication: Rheumatoid arthritis
     Dosage: 50 MG, QW (ONCE A WEEK)
     Route: 058
  2. ERELZI [Suspect]
     Active Substance: ETANERCEPT-SZZS
     Dosage: 50 MG ONCE A WEEK
     Route: 058

REACTIONS (2)
  - Haemoglobin increased [Unknown]
  - Alanine aminotransferase increased [Not Recovered/Not Resolved]
